FAERS Safety Report 4318234-3 (Version None)
Quarter: 2004Q1

REPORT INFORMATION
  Report Type: 
  Country: None (occurrence: None)
  Receive Date: 20040315
  Receipt Date: 20040302
  Transmission Date: 20041129
  Serious: Yes (Hospitalization)
  Sender: FDA-Public Use
  Company Number: HQWYE497402MAR04

PATIENT
  Age: 25 Year
  Sex: Female

DRUGS (2)
  1. PAROXETINE HCL [Suspect]
     Indication: DEPRESSION
     Dosage: 50 MG 1X PER 1 DAY ORAL
     Route: 048
     Dates: start: 20031222, end: 20040226
  2. PAROXETINE HCL [Suspect]
     Indication: DEPRESSION
     Dosage: 50 MG 1X PER 1 DAY ORAL
     Route: 048
     Dates: start: 20040101

REACTIONS (5)
  - CRYING [None]
  - DEPRESSION [None]
  - DRUG INEFFECTIVE [None]
  - DRUG WITHDRAWAL SYNDROME [None]
  - TREATMENT NONCOMPLIANCE [None]
